FAERS Safety Report 5700372-1 (Version None)
Quarter: 2008Q2

REPORT INFORMATION
  Report Type: 
  Country: None (occurrence: None)
  Receive Date: 20080410
  Receipt Date: 20080401
  Transmission Date: 20081010
  Serious: Yes (Hospitalization)
  Sender: FDA-Public Use
  Company Number: JP-ELI_LILLY_AND_COMPANY-JP200804000356

PATIENT
  Age: 60 Year
  Sex: Male
  Weight: 48 kg

DRUGS (8)
  1. GEMZAR [Suspect]
     Indication: NON-SMALL CELL LUNG CANCER
     Dosage: 1471MG, UNK
     Route: 042
     Dates: start: 20080218, end: 20080218
  2. CARBOMERCK [Concomitant]
     Indication: NON-SMALL CELL LUNG CANCER
     Dosage: 310 MG, UNK
     Route: 042
     Dates: start: 20080218, end: 20080218
  3. CODEINE SUL TAB [Concomitant]
     Route: 048
  4. MAGMITT [Concomitant]
     Dosage: 330 MG, UNK
     Route: 048
  5. FAMOTIDINE [Concomitant]
     Dosage: 20MG, UNK
     Route: 048
  6. SODIUM CHLORIDE [Concomitant]
     Route: 065
     Dates: start: 20080218
  7. KYTRIL [Concomitant]
     Dosage: 3 MG, UNK
     Route: 065
     Dates: start: 20080218, end: 20080218
  8. DECADRON [Concomitant]
     Dosage: 8 MG, UNK
     Route: 065
     Dates: start: 20080218, end: 20080218

REACTIONS (1)
  - CEREBRAL HAEMORRHAGE [None]
